FAERS Safety Report 10164125 (Version 1)
Quarter: 2014Q2

REPORT INFORMATION
  Report Type: Spontaneous
  Country: US (occurrence: US)
  Receive Date: 20140510
  Receipt Date: 20140510
  Transmission Date: 20141212
  Serious: No
  Sender: FDA-Public Use
  Company Number: US-BRISTOL-MYERS SQUIBB COMPANY-19446525

PATIENT
  Age: 46 Year
  Sex: Male
  Weight: 142.85 kg

DRUGS (6)
  1. BYETTA PEN DISPOSABLE [Suspect]
     Indication: TYPE 2 DIABETES MELLITUS
     Dosage: 2ND DOSE:23SEP2013
     Route: 058
     Dates: start: 20130916
  2. BYDUREON [Suspect]
  3. METFORMIN HCL [Suspect]
  4. METOPROLOL [Concomitant]
  5. LISINOPRIL [Concomitant]
  6. LEVOTHYROXINE [Concomitant]

REACTIONS (2)
  - Dizziness [Not Recovered/Not Resolved]
  - Drug ineffective [Unknown]
